FAERS Safety Report 15505167 (Version 1)
Quarter: 2018Q4

REPORT INFORMATION
  Report Type: Spontaneous
  Country: US (occurrence: US)
  Receive Date: 20181010
  Receipt Date: 20181010
  Transmission Date: 20190205
  Serious: No
  Sender: FDA-Public Use
  Company Number: None

PATIENT
  Sex: Male

DRUGS (2)
  1. EFUDEX [Suspect]
     Active Substance: FLUOROURACIL
  2. FLUOROURACIL. [Suspect]
     Active Substance: FLUOROURACIL

REACTIONS (5)
  - Drug intolerance [None]
  - Crying [None]
  - Scab [None]
  - Pain [None]
  - Swelling [None]
